FAERS Safety Report 23872297 (Version 1)
Quarter: 2024Q2

REPORT INFORMATION
  Report Type: Spontaneous
  Country: US (occurrence: None)
  Receive Date: 20240520
  Receipt Date: 20240520
  Transmission Date: 20240716
  Serious: Yes (Life-Threatening, Hospitalization, Other)
  Sender: FDA-Public Use
  Company Number: US-MLMSERVICE-20240429-PI042103-00329-1

PATIENT
  Age: 9 Year
  Sex: Male
  Weight: 38.6 kg

DRUGS (6)
  1. SODIUM CHLORIDE [Concomitant]
     Active Substance: SODIUM CHLORIDE
     Indication: Malnutrition
     Dosage: MAINTENANCE IV FLUID ()
     Route: 042
  2. IBUPROFEN [Suspect]
     Active Substance: IBUPROFEN
     Indication: Pain management
     Dosage: OVER 3.5 DAYS
     Route: 048
  3. VANCOMYCIN [Suspect]
     Active Substance: VANCOMYCIN
     Indication: Scrotal cellulitis
     Route: 042
  4. POTASSIUM CHLORIDE [Concomitant]
     Active Substance: POTASSIUM CHLORIDE
     Indication: Malnutrition
     Route: 048
  5. DEXTROSE [Concomitant]
     Active Substance: DEXTROSE\DEXTROSE MONOHYDRATE
     Indication: Malnutrition
     Dosage: MAINTENANCE IV FLUID ()
     Route: 042
  6. PIPERACILLIN SODIUM\TAZOBACTAM SODIUM [Suspect]
     Active Substance: PIPERACILLIN SODIUM\TAZOBACTAM SODIUM
     Indication: Scrotal cellulitis
     Route: 042

REACTIONS (3)
  - Hypokalaemia [Recovering/Resolving]
  - Drug level increased [Recovered/Resolved]
  - Acute kidney injury [Recovered/Resolved]
